FAERS Safety Report 9797415 (Version 1)
Quarter: 2014Q1

REPORT INFORMATION
  Report Type: Spontaneous
  Country: FR (occurrence: FR)
  Receive Date: 20140106
  Receipt Date: 20140106
  Transmission Date: 20141002
  Serious: Yes (Other)
  Sender: FDA-Public Use
  Company Number: PHHY2013FR153925

PATIENT
  Age: 5 Year
  Sex: Male

DRUGS (2)
  1. EXJADE [Suspect]
     Indication: SICKLE CELL ANAEMIA
     Dosage: UNK UKN, UNK
     Route: 048
     Dates: start: 201302, end: 201303
  2. EXJADE [Suspect]
     Dosage: 500 MG, QD (25MG/KG)
     Route: 048

REACTIONS (4)
  - Cell death [Recovered/Resolved]
  - Decreased appetite [Recovered/Resolved]
  - Vomiting [Recovered/Resolved]
  - Liver function test abnormal [Recovered/Resolved]
